FAERS Safety Report 21182626 (Version 1)
Quarter: 2022Q3

REPORT INFORMATION
  Report Type: Spontaneous
  Country: US (occurrence: US)
  Receive Date: 20220808
  Receipt Date: 20220808
  Transmission Date: 20221027
  Serious: No
  Sender: FDA-Public Use
  Company Number: US-SA-SAC20220801001762

PATIENT
  Sex: Female
  Weight: 65.3 kg

DRUGS (18)
  1. DUPIXENT [Suspect]
     Active Substance: DUPILUMAB
     Indication: Dermatitis atopic
     Dosage: 300 MG, QOW
     Route: 058
  2. DUPIXENT [Suspect]
     Active Substance: DUPILUMAB
     Indication: Illness
  3. FLUTICASONE PROPIONATE [Concomitant]
     Active Substance: FLUTICASONE PROPIONATE
  4. NORVASC [Concomitant]
     Active Substance: AMLODIPINE BESYLATE
  5. EPIDIOLEX [Concomitant]
     Active Substance: CANNABIDIOL
  6. PREDNISONE [Concomitant]
     Active Substance: PREDNISONE
  7. ZOCOR [Concomitant]
     Active Substance: SIMVASTATIN
  8. OMEPRAZOLE [Concomitant]
     Active Substance: OMEPRAZOLE
  9. SINGULAIR [Concomitant]
     Active Substance: MONTELUKAST SODIUM
  10. MELOXICAM [Concomitant]
     Active Substance: MELOXICAM
  11. HYDROCHLOROTHIAZIDE [Concomitant]
     Active Substance: HYDROCHLOROTHIAZIDE
  12. VOLTAREN ARTHRITIS PAIN [Concomitant]
     Active Substance: DICLOFENAC SODIUM
  13. VITAMIN D3 [Concomitant]
     Active Substance: CHOLECALCIFEROL
  14. BREO ELLIPTA [Concomitant]
     Active Substance: FLUTICASONE FUROATE\VILANTEROL TRIFENATATE
  15. ALBUTEROL SULFATE [Concomitant]
     Active Substance: ALBUTEROL SULFATE
  16. CYMBALTA [Concomitant]
     Active Substance: DULOXETINE HYDROCHLORIDE
  17. LISINOPRIL [Concomitant]
     Active Substance: LISINOPRIL
  18. PROLIA [Concomitant]
     Active Substance: DENOSUMAB

REACTIONS (2)
  - COVID-19 [Not Recovered/Not Resolved]
  - Product use in unapproved indication [Unknown]
